FAERS Safety Report 4538028-3 (Version None)
Quarter: 2004Q4

REPORT INFORMATION
  Report Type: 
  Country: None (occurrence: None)
  Receive Date: 20041226
  Receipt Date: 20041216
  Transmission Date: 20050328
  Serious: Yes (Death, Life-Threatening)
  Sender: FDA-Public Use
  Company Number: DE-ABBOTT-04P-062-0284037-00

PATIENT
  Sex: Female

DRUGS (2)
  1. KLACID I.V. [Suspect]
     Indication: PNEUMONIA
     Route: 042
     Dates: start: 20040107, end: 20040107
  2. CEFUROXIME [Concomitant]
     Indication: PNEUMONIA
     Route: 042
     Dates: start: 20040107, end: 20040107

REACTIONS (1)
  - SEPSIS [None]
